FAERS Safety Report 20344518 (Version 1)
Quarter: 2022Q1

REPORT INFORMATION
  Report Type: Spontaneous
  Country: JP (occurrence: JP)
  Receive Date: 20220118
  Receipt Date: 20220118
  Transmission Date: 20220423
  Serious: Yes (Other)
  Sender: FDA-Public Use
  Company Number: JP-ASTELLAS-2022JP000638

PATIENT
  Sex: Male

DRUGS (5)
  1. MIRABEGRON [Suspect]
     Active Substance: MIRABEGRON
     Indication: Pollakiuria
     Dosage: UNK UNK, UNKNOWN FREQ.
     Route: 048
  2. HARNAL [Suspect]
     Active Substance: TAMSULOSIN HYDROCHLORIDE
     Indication: Pollakiuria
     Dosage: UNK UNK, UNKNOWN FREQ.
     Route: 048
  3. VESICARE [Suspect]
     Active Substance: SOLIFENACIN SUCCINATE
     Indication: Pollakiuria
     Dosage: UNK UNK, UNKNOWN FREQ.
     Route: 048
  4. IMIDAFENACIN [Suspect]
     Active Substance: IMIDAFENACIN
     Indication: Pollakiuria
     Dosage: UNK UNK, UNKNOWN FREQ.
     Route: 048
  5. FLAVOXATE [Suspect]
     Active Substance: FLAVOXATE
     Indication: Pollakiuria
     Dosage: UNK UNK, UNKNOWN FREQ.
     Route: 048

REACTIONS (5)
  - Erectile dysfunction [Unknown]
  - Urinary tract inflammation [Recovering/Resolving]
  - Urethral pain [Unknown]
  - Thirst [Unknown]
  - Constipation [Unknown]
